FAERS Safety Report 5277650-6 (Version None)
Quarter: 2007Q1

REPORT INFORMATION
  Report Type: 
  Country: None (occurrence: None)
  Receive Date: 20070327
  Receipt Date: 20070320
  Transmission Date: 20070707
  Serious: Yes (Hospitalization)
  Sender: FDA-Public Use
  Company Number: JP-BOEHRINGER INGELHEIM PHARMACEUTICALS, INC.-2007-BP-03984NB

PATIENT
  Age: 6 Decade
  Sex: Female

DRUGS (2)
  1. BI-SIFROL TABLETS [Suspect]
     Route: 048
  2. DEPAS [Suspect]
     Route: 048

REACTIONS (2)
  - OVERDOSE [None]
  - SOMNOLENCE [None]
